FAERS Safety Report 25778910 (Version 1)
Quarter: 2025Q3

REPORT INFORMATION
  Report Type: Spontaneous
  Country: US (occurrence: US)
  Receive Date: 20250909
  Receipt Date: 20250909
  Transmission Date: 20251021
  Serious: No
  Sender: JOHNSON AND JOHNSON
  Company Number: US-JNJFOC-20250902470

PATIENT

DRUGS (3)
  1. SPRAVATO [Suspect]
     Active Substance: ESKETAMINE
     Indication: Product used for unknown indication
     Dates: start: 20250708, end: 20250708
  2. SPRAVATO [Suspect]
     Active Substance: ESKETAMINE
     Dates: start: 20250710, end: 20250826
  3. SPRAVATO [Suspect]
     Active Substance: ESKETAMINE

REACTIONS (2)
  - Muscle tightness [Unknown]
  - Muscle spasms [Unknown]
